FAERS Safety Report 5291181-9 (Version None)
Quarter: 2007Q2

REPORT INFORMATION
  Report Type: 
  Country: None (occurrence: None)
  Receive Date: 20070409
  Receipt Date: 20070402
  Transmission Date: 20071010
  Serious: Yes (Other)
  Sender: FDA-Public Use
  Company Number: JP-ROCHE-491647

PATIENT
  Age: 4 Year
  Sex: Female

DRUGS (1)
  1. TAMIFLU [Suspect]
     Dosage: TAMIFLU DRY SYRUP 3%.
     Route: 048
     Dates: start: 20070328, end: 20070330

REACTIONS (2)
  - COLD SWEAT [None]
  - TACHYPNOEA [None]
